FAERS Safety Report 20003095 (Version 2)
Quarter: 2021Q4

REPORT INFORMATION
  Report Type: Spontaneous
  Country: NL (occurrence: CN)
  Receive Date: 20211027
  Receipt Date: 20211028
  Transmission Date: 20220303
  Serious: Yes (Life-Threatening, Hospitalization, Other)
  Sender: FDA-Public Use
  Company Number: CN-MLMSERVICE-20211013-3163260-1

PATIENT
  Age: 21 Year
  Sex: Female

DRUGS (2)
  1. OLANZAPINE [Suspect]
     Active Substance: OLANZAPINE
     Indication: Suicide attempt
     Dosage: 700 MG, UNKNOWN
     Route: 048
  2. HEPARIN [Suspect]
     Active Substance: HEPARIN SODIUM
     Indication: Haemoperfusion
     Dosage: UNK UNK, UNKNOWN
     Route: 065

REACTIONS (14)
  - Neuroleptic malignant syndrome [Recovered/Resolved]
  - Muscle injury [Recovered/Resolved]
  - Lipase increased [Recovered/Resolved]
  - Toxicity to various agents [Recovered/Resolved]
  - Gastrointestinal haemorrhage [Recovered/Resolved]
  - Amylase increased [Recovered/Resolved]
  - Decubitus ulcer [Recovered/Resolved]
  - Ileus paralytic [Recovered/Resolved]
  - Anaemia [Recovered/Resolved]
  - Akinesia [Recovered/Resolved]
  - Loss of consciousness [Recovered/Resolved]
  - Intentional overdose [Recovered/Resolved]
  - Somnolence [Recovered/Resolved]
  - Rhabdomyolysis [Recovered/Resolved]
